FAERS Safety Report 7228759 (Version 4)
Quarter: 2013Q2

REPORT INFORMATION
  Report Type: Spontaneous
  Country: US (occurrence: US)
  Receive Date: 20091223
  Receipt Date: 20130614
  Transmission Date: 20140414
  Serious: Yes (Hospitalization)
  Sender: FDA-Public Use
  Company Number: US-BAYER-200943140NA

PATIENT
  Age: 39 Year
  Sex: Female
  Weight: 121.9 kg

DRUGS (8)
  1. YAZ [Suspect]
     Dosage: UNK
     Route: 048
  2. GLIPIZIDE [Concomitant]
  3. LABETALOL [Concomitant]
     Indication: BLOOD PRESSURE INCREASED
  4. CLONIDINE [Concomitant]
  5. MOBIC [Concomitant]
  6. METFORMIN [Concomitant]
  7. DIOVAN HCT [Concomitant]
  8. HYDROCHLOROTHIAZIDE [Concomitant]
     Indication: BLOOD PRESSURE INCREASED

REACTIONS (8)
  - Pulmonary embolism [Unknown]
  - Deep vein thrombosis [Unknown]
  - Deep vein thrombosis [Unknown]
  - Swelling [Unknown]
  - Dizziness [Unknown]
  - Dry skin [Unknown]
  - Skin discolouration [Unknown]
  - Pain [Unknown]
